FAERS Safety Report 5247660-3 (Version None)
Quarter: 2007Q1

REPORT INFORMATION
  Report Type: 
  Country: None (occurrence: None)
  Receive Date: 20070222
  Receipt Date: 20070205
  Transmission Date: 20070707
  Serious: Yes (Death, Hospitalization)
  Sender: FDA-Public Use
  Company Number: DSA_29332_2007

PATIENT
  Age: 88 Year
  Sex: Female

DRUGS (12)
  1. ENALAPRIL MALEATE AND HYDROCHLOROTHIAZIDE [Suspect]
     Indication: ESSENTIAL HYPERTENSION
     Dosage: 1 DF BID PO
     Route: 048
     Dates: start: 20060701
  2. ADOLONTA [Suspect]
     Indication: BACK PAIN
     Dosage: 50 MG TID PO
     Route: 048
     Dates: start: 20061027
  3. SEVREDOL [Suspect]
     Indication: BACK PAIN
     Dosage: DF PO
     Route: 048
     Dates: start: 20061124, end: 20061125
  4. FENTANYL [Suspect]
     Indication: BACK PAIN
     Dosage: 1 DF TID TP
     Route: 064
     Dates: start: 20061122, end: 20061126
  5. NOLOTIL [Suspect]
     Indication: BACK PAIN
     Dosage: DF PO
     Route: 048
     Dates: start: 20061102, end: 20061122
  6. ASPIRIN [Suspect]
     Indication: ISCHAEMIC CARDIOMYOPATHY
     Dosage: 100 MG Q DAY PO
     Route: 048
     Dates: start: 20060701
  7. NONSTEROIDAL ANTI-INFLAMMATORY DRUG (UNSPECIFIED) [Suspect]
     Indication: BACK PAIN
     Dosage: DF PO
     Route: 048
     Dates: start: 20061027, end: 20061102
  8. DOXAZOSIN MESYLATE [Suspect]
     Indication: ESSENTIAL HYPERTENSION
     Dosage: DF
     Dates: start: 20060701
  9. ACETAMINOPHEN [Suspect]
     Indication: BACK PAIN
     Dosage: DF PO
     Route: 048
     Dates: start: 20061102, end: 20061122
  10. FOSAMAX [Concomitant]
  11. CALCITONIN-SALMON [Concomitant]
  12. CALCIUM CARBONATE [Concomitant]

REACTIONS (8)
  - ACIDOSIS [None]
  - BACK PAIN [None]
  - CONFUSIONAL STATE [None]
  - DRUG INEFFECTIVE [None]
  - LEUKOCYTOSIS [None]
  - NO THERAPEUTIC RESPONSE [None]
  - RENAL FAILURE ACUTE [None]
  - RENAL TUBULAR NECROSIS [None]
